FAERS Safety Report 7914132-4 (Version None)
Quarter: 2011Q4

REPORT INFORMATION
  Report Type: 
  Country: None (occurrence: None)
  Receive Date: 20111114
  Receipt Date: 20111114
  Transmission Date: 20120403
  Serious: Yes (Hospitalization)
  Sender: FDA-Public Use
  Company Number: None

PATIENT
  Sex: Female

DRUGS (11)
  1. MELOXICAM [Concomitant]
  2. HYDROCODONE BITARTRATE AND ACETAMINOPHEN [Concomitant]
  3. PROTONIX [Concomitant]
  4. INDERAL [Concomitant]
  5. ENBREL [Suspect]
     Indication: RHEUMATOID ARTHRITIS
     Dosage: 50MG WEEKLY SUBCUTANEOUSLY
     Route: 058
     Dates: start: 20101006, end: 20111026
  6. LEVOTHYROXINE SODIUM [Concomitant]
  7. ZOLPIDEM [Concomitant]
  8. CLONAZEPAM [Concomitant]
  9. MELOXICAM [Concomitant]
  10. PRAMIPEXOLE DIHYDROCHLORIDE [Concomitant]
  11. HYDROCHLOROTHIAZIDE [Concomitant]

REACTIONS (5)
  - HAEMATEMESIS [None]
  - LIVER INJURY [None]
  - LIMB INJURY [None]
  - STAPHYLOCOCCAL INFECTION [None]
  - SPLEEN DISORDER [None]
